FAERS Safety Report 4622589-X (Version None)
Quarter: 2005Q2

REPORT INFORMATION
  Report Type: 
  Country: None (occurrence: None)
  Receive Date: 20050317
  Receipt Date: 20041115
  Transmission Date: 20051028
  Serious: Yes (Other)
  Sender: FDA-Public Use
  Company Number: PHEH2004US12344

PATIENT
  Age: 85 Year
  Sex: Female

DRUGS (7)
  1. TRILEPTAL [Suspect]
     Indication: CONVULSION
     Dosage: 450 MG, BID, ORAL
     Route: 048
     Dates: start: 20040101, end: 20041104
  2. TRILEPTAL [Suspect]
     Dosage: 300 MG, BID, ORAL
     Route: 048
     Dates: start: 20041105
  3. COREG [Concomitant]
  4. ACTONEL [Concomitant]
  5. SPIRONOLACTONE [Concomitant]
  6. PLAVIX [Concomitant]
  7. ATACAND [Concomitant]

REACTIONS (5)
  - ABDOMINAL DISTENSION [None]
  - CARDIAC FAILURE [None]
  - CONTUSION [None]
  - OEDEMA PERIPHERAL [None]
  - WEIGHT INCREASED [None]
